FAERS Safety Report 8437879-2 (Version None)
Quarter: 2012Q2

REPORT INFORMATION
  Report Type: 
  Country: None (occurrence: None)
  Receive Date: 20120614
  Receipt Date: 20120522
  Transmission Date: 20120825
  Serious: No
  Sender: FDA-Public Use
  Company Number: US-AMGEN-USASP2012029564

PATIENT
  Age: 59 Year
  Sex: Male
  Weight: 97.959 kg

DRUGS (3)
  1. ANTIHYPERTENSIVES [Concomitant]
  2. PROLIA [Suspect]
     Indication: BONE LOSS
     Dosage: 60 MG, Q6MO
     Route: 058
     Dates: start: 20111108, end: 20120507
  3. LUPRON [Concomitant]
     Indication: PROSTATE CANCER
     Dosage: 45 MG, Q6MO
     Route: 030
     Dates: start: 20100709

REACTIONS (2)
  - RASH PUSTULAR [None]
  - SKIN EXFOLIATION [None]
